FAERS Safety Report 4325556-9 (Version None)
Quarter: 2004Q1

REPORT INFORMATION
  Report Type: 
  Country: None (occurrence: None)
  Receive Date: 20040324
  Receipt Date: 20040312
  Transmission Date: 20041129
  Serious: No
  Sender: FDA-Public Use
  Company Number: 04H-163-0253281-00

PATIENT

DRUGS (3)
  1. LEUCOVORIN CALCIUM [Suspect]
     Indication: COLORECTAL CANCER
     Dosage: 20 MG/M2, ONCE, INTRAVENOUS
     Route: 042
  2. IRINOTECAN [Suspect]
     Indication: COLORECTAL CANCER
     Dosage: 125 MG/M2, ONCE, INTRAVENOUS
     Route: 042
  3. FLUOROURACIL [Suspect]
     Indication: COLORECTAL CANCER
     Dosage: 500 MG/M2, ONCE, INTRAVENOUS,DAY 1
     Route: 042

REACTIONS (1)
  - FEBRILE NEUTROPENIA [None]
